FAERS Safety Report 25070066 (Version 1)
Quarter: 2025Q1

REPORT INFORMATION
  Report Type: Report from Study
  Country: CN (occurrence: CN)
  Receive Date: 20250312
  Receipt Date: 20250312
  Transmission Date: 20250409
  Serious: Yes (Other)
  Sender: GILEAD
  Company Number: CN-GILEAD-2025-0706906

PATIENT
  Age: 37 Year
  Sex: Female

DRUGS (4)
  1. SACITUZUMAB GOVITECAN-HZIY [Suspect]
     Active Substance: SACITUZUMAB GOVITECAN-HZIY
     Indication: Breast mass
     Route: 041
     Dates: start: 20250117
  2. SACITUZUMAB GOVITECAN-HZIY [Suspect]
     Active Substance: SACITUZUMAB GOVITECAN-HZIY
     Route: 041
     Dates: start: 20250207
  3. AVASTIN [Concomitant]
     Active Substance: BEVACIZUMAB
     Dosage: 400 MG, Q3WK
     Dates: start: 20250117
  4. AVASTIN [Concomitant]
     Active Substance: BEVACIZUMAB
     Dosage: 400MG, D1, EVERY 3 WEEKS
     Dates: start: 20250208

REACTIONS (6)
  - Pneumonia [Unknown]
  - Immunodeficiency [Unknown]
  - Anaemia [Unknown]
  - Decreased appetite [Unknown]
  - Hyperlipidaemia [Unknown]
  - Sleep disorder [Unknown]

NARRATIVE: CASE EVENT DATE: 20250117
